FAERS Safety Report 8595332-X (Version None)
Quarter: 2012Q3

REPORT INFORMATION
  Report Type: 
  Country: None (occurrence: None)
  Receive Date: 20120815
  Receipt Date: 20120808
  Transmission Date: 20120928
  Serious: Yes (Other)
  Sender: FDA-Public Use
  Company Number: PHEH2012US013418

PATIENT
  Sex: Female

DRUGS (4)
  1. TOBI [Suspect]
     Dosage: 5 ML, BID
     Dates: start: 20120416
  2. FLUTICASONE PROPIONATE [Concomitant]
     Dosage: UNK, BID
  3. TOBI [Suspect]
     Indication: BRONCHITIS
     Dosage: 300 MG, BID
  4. TOBI [Suspect]
     Indication: LUNG DISORDER
     Dosage: 5 ML, BID
     Dates: start: 20120601

REACTIONS (4)
  - HEARING IMPAIRED [None]
  - WRIST FRACTURE [None]
  - PAIN [None]
  - DYSPHONIA [None]
